FAERS Safety Report 15742229 (Version 2)
Quarter: 2018Q4

REPORT INFORMATION
  Report Type: Spontaneous
  Country: JP (occurrence: JP)
  Receive Date: 20181219
  Receipt Date: 20181221
  Transmission Date: 20190205
  Serious: Yes (Death)
  Sender: FDA-Public Use
  Company Number: JP-PFIZER INC-2018504258

PATIENT
  Age: 60 Year
  Sex: Male

DRUGS (1)
  1. LORBRENA [Suspect]
     Active Substance: LORLATINIB
     Dosage: 100 MG, DAILY
     Route: 048
     Dates: start: 20181126

REACTIONS (4)
  - Hallucination [Unknown]
  - Visual impairment [Unknown]
  - Pneumonia [Fatal]
  - Affective disorder [Unknown]

NARRATIVE: CASE EVENT DATE: 20181205
